FAERS Safety Report 25801647 (Version 1)
Quarter: 2025Q3

REPORT INFORMATION
  Report Type: Spontaneous
  Country: US (occurrence: US)
  Receive Date: 20250915
  Receipt Date: 20250915
  Transmission Date: 20251021
  Serious: No
  Sender: SANOFI AVENTIS
  Company Number: US-SA-2025SA273780

PATIENT
  Sex: Female
  Weight: 87.68 kg

DRUGS (1)
  1. KEVZARA [Suspect]
     Active Substance: SARILUMAB
     Indication: Rheumatoid arthritis
     Dosage: INJECT 1.14 ML
     Route: 058

REACTIONS (1)
  - Feeling abnormal [Recovered/Resolved]
